FAERS Safety Report 16643676 (Version 1)
Quarter: 2019Q3

REPORT INFORMATION
  Report Type: Spontaneous
  Country: US (occurrence: US)
  Receive Date: 20190729
  Receipt Date: 20190729
  Transmission Date: 20191004
  Serious: No
  Sender: FDA-Public Use
  Company Number: US-PRINSTON PHARMACEUTICAL INC.-2019PRN00296

PATIENT
  Age: 71 Year
  Sex: Female
  Weight: 90.7 kg

DRUGS (21)
  1. CHLORTHALIDONE. [Concomitant]
     Active Substance: CHLORTHALIDONE
     Indication: HYPERTENSION
     Dosage: 25 MG, 1X/DAY
  2. COQ10 [Concomitant]
     Active Substance: UBIDECARENONE
     Dosage: 300 MG
  3. TURMERIC [Concomitant]
     Active Substance: HERBALS\TURMERIC
     Dosage: 400 MG
  4. PPQ [Concomitant]
     Dosage: 20 MG
  5. ASTAXANTHIN [Concomitant]
     Active Substance: ASTAXANTHIN
     Dosage: 4000 ?G
  6. LOSARTAN POTASSIUM (LUPIN) [Suspect]
     Active Substance: LOSARTAN POTASSIUM
     Indication: HYPERTENSION
     Dosage: 50 MG, 1X/DAY
     Route: 048
  7. IMMUNE FACTOR [Concomitant]
  8. LOSARTAN POTASSIUM. [Suspect]
     Active Substance: LOSARTAN POTASSIUM
     Indication: HYPERTENSION
     Dosage: 50 MG, 1X/DAY
     Route: 048
  9. VITAMIN K2MK7 [Concomitant]
     Dosage: 200 MG
  10. CRANBERRY BENEFITS [Concomitant]
  11. ALPHA LIPOIC ACID [Concomitant]
     Active Substance: .ALPHA.-LIPOIC ACID
     Dosage: 400 MG
  12. OMEGA 3 [Concomitant]
     Active Substance: OMEGA-3 FATTY ACIDS
     Dosage: 1000 MG
  13. CINNAMON. [Concomitant]
     Active Substance: CINNAMON
     Dosage: 350 MG
  14. MSM 500 [Concomitant]
     Dosage: 1000 MG
  15. ULTRA FRIENDLY FLORA 30 BILLION CFUS [Concomitant]
  16. ULTRA EYE SUPPORT [Concomitant]
  17. BERBERINE [Concomitant]
     Active Substance: BERBERINE
     Dosage: 250 MG
  18. GARLIC EXTRACT [Concomitant]
     Active Substance: GARLIC
  19. VITAMIN D3 [Concomitant]
     Active Substance: CHOLECALCIFEROL
     Dosage: 250 MG
  20. PHYTOCERAMIDE WITH BIOTIN [Concomitant]
  21. ACETYL-L-CARNITINE [Concomitant]
     Dosage: 500 MG

REACTIONS (4)
  - Dizziness [Unknown]
  - Product dose omission [Unknown]
  - Nausea [Unknown]
  - Blood pressure increased [Unknown]

NARRATIVE: CASE EVENT DATE: 20190303
